FAERS Safety Report 9182198 (Version 2)
Quarter: 2013Q2

REPORT INFORMATION
  Report Type: Report from Study
  Country: US (occurrence: US)
  Receive Date: 20130322
  Receipt Date: 20130417
  Transmission Date: 20140414
  Serious: Yes (Other)
  Sender: FDA-Public Use
  Company Number: US-PURDUE-USA-2013-0100041

PATIENT
  Sex: Female

DRUGS (2)
  1. OXYCONTIN (NDA 22-272) [Suspect]
     Indication: PULMONARY FIBROSIS
     Dosage: 80 MG, BID
     Route: 048
  2. OXYCONTIN (NDA 22-272) [Suspect]
     Indication: PAIN

REACTIONS (5)
  - Pulmonary fibrosis [Unknown]
  - Convulsion [Unknown]
  - Influenza [Not Recovered/Not Resolved]
  - Malaise [Unknown]
  - Nausea [Not Recovered/Not Resolved]
